FAERS Safety Report 5994704-7 (Version None)
Quarter: 2008Q4

REPORT INFORMATION
  Report Type: 
  Country: None (occurrence: None)
  Receive Date: 20081212
  Receipt Date: 20081205
  Transmission Date: 20090506
  Serious: Yes (Death)
  Sender: FDA-Public Use
  Company Number: US-GILEAD-2008-0019259

PATIENT
  Sex: Female
  Weight: 59.928 kg

DRUGS (17)
  1. LETAIRIS [Suspect]
     Indication: PULMONARY ARTERIAL HYPERTENSION
     Route: 048
     Dates: start: 20070701
  2. LETAIRIS [Suspect]
     Route: 048
     Dates: start: 20070814
  3. REMODULIN [Concomitant]
     Route: 042
     Dates: start: 20050101
  4. REMODULIN [Concomitant]
     Route: 058
     Dates: start: 20000101, end: 20050101
  5. PLAQUENIL [Concomitant]
     Route: 048
  6. PLAQUENIL [Concomitant]
     Route: 048
  7. COUMADIN [Concomitant]
     Route: 048
  8. COUMADIN [Concomitant]
     Route: 048
  9. OXYGEN [Concomitant]
     Route: 055
  10. CALCIUM [Concomitant]
     Route: 048
  11. NEURONTIN [Concomitant]
     Route: 048
  12. FOSAMAX [Concomitant]
     Route: 048
  13. LASIX [Concomitant]
  14. VITAMIN D [Concomitant]
     Route: 048
  15. MULTI-VITAMIN [Concomitant]
     Route: 048
  16. FISH OIL [Concomitant]
     Route: 048
  17. POTASSIUM CHLORIDE [Concomitant]

REACTIONS (1)
  - DEATH [None]
